FAERS Safety Report 8891202 (Version 2)
Quarter: 2013Q1

REPORT INFORMATION
  Report Type: Spontaneous
  Country: US (occurrence: US)
  Receive Date: 20121107
  Receipt Date: 20130120
  Transmission Date: 20140127
  Serious: No
  Sender: FDA-Public Use
  Company Number: US-ASTRAZENECA-2012SE80958

PATIENT
  Age: 72 Year
  Sex: Female

DRUGS (2)
  1. CRESTOR [Suspect]
     Route: 048
  2. NIASPAN [Concomitant]

REACTIONS (2)
  - Adverse event [Unknown]
  - Blood cholesterol increased [Unknown]
